FAERS Safety Report 24387317 (Version 1)
Quarter: 2024Q4

REPORT INFORMATION
  Report Type: Spontaneous
  Country: US (occurrence: None)
  Receive Date: 20241001
  Receipt Date: 20241001
  Transmission Date: 20250114
  Serious: No
  Sender: Public
  Company Number: None

PATIENT
  Age: 88 Year
  Sex: Female
  Weight: 45.36 kg

DRUGS (1)
  1. FORTEO [Suspect]
     Active Substance: TERIPARATIDE
     Indication: Senile osteoporosis
     Dosage: OTHER STRENGTH : 600 MCG/2.4ML;?FREQUENCY : DAILY;?
     Route: 058
     Dates: start: 202401

REACTIONS (3)
  - Nerve compression [None]
  - Intentional dose omission [None]
  - Urinary incontinence [None]
